FAERS Safety Report 16583566 (Version 1)
Quarter: 2019Q3

REPORT INFORMATION
  Report Type: Report from Study
  Country: ES (occurrence: ES)
  Receive Date: 20190717
  Receipt Date: 20190717
  Transmission Date: 20191004
  Serious: Yes (Death, Hospitalization)
  Sender: FDA-Public Use
  Company Number: ES-TEVA-2019-ES-1076513

PATIENT
  Age: 94 Year
  Sex: Female

DRUGS (9)
  1. LEVOFLOXACINO ALTER 500 MG COMPRIMIDOS RECUBIERTOS CON PELICULA EFG, 1 [Interacting]
     Active Substance: LEVOFLOXACIN
     Dosage: 1/24
     Route: 048
     Dates: start: 20181025, end: 20181030
  2. PAZITAL 37,5 MG/325 MG COMPRIMIDOS RECUBIERTOS CON PELICULA , 20 COMPR [Concomitant]
     Route: 048
  3. DITROPAN 5 MG COMPRIMIDOS , 60 COMPRIMIDOS [Concomitant]
     Route: 048
  4. NOLOTIL 575MG 20 CAPSULAS [Interacting]
     Active Substance: METAMIZOLE MAGNESIUM
     Indication: BACK PAIN
     Dosage: SP
     Route: 048
     Dates: start: 20180926, end: 20181030
  5. ORFIDAL 1 MG COMPRIMIDOS, 50 COMPRIMIDOS [Concomitant]
     Active Substance: LORAZEPAM
     Route: 048
  6. ENALAPRIL/HIDROCLOROTIAZIDA RATIOPHARM 20 MG/ 12, 5 MG COMPRIMIDOS EFG [Suspect]
     Active Substance: ENALAPRIL MALEATE\HYDROCHLOROTHIAZIDE
     Indication: HYPERTENSION
     Dosage: 1-0-0. 1 EVERY 24 HOURS
     Route: 048
     Dates: start: 20160609, end: 20181030
  7. MIRTAZAPINA 15 MG COMPRIMIDOS [Concomitant]
     Indication: INSOMNIA
     Route: 048
     Dates: start: 20170119
  8. OMEPRAZOL 40 MG 28 CAPSULAS [Concomitant]
     Route: 048
  9. PARACETAMOL 1.000 MG 40 COMPRIMIDOS [Concomitant]
     Route: 048

REACTIONS (3)
  - Hyperkalaemia [Fatal]
  - Drug interaction [Unknown]
  - Acute kidney injury [Fatal]

NARRATIVE: CASE EVENT DATE: 2018
